FAERS Safety Report 5646762-7 (Version None)
Quarter: 2008Q1

REPORT INFORMATION
  Report Type: 
  Country: None (occurrence: None)
  Receive Date: 20080303
  Receipt Date: 20080221
  Transmission Date: 20080703
  Serious: Yes (Other)
  Sender: FDA-Public Use
  Company Number: US-ROCHE-549535

PATIENT
  Age: 45 Year
  Sex: Female
  Weight: 56.7 kg

DRUGS (1)
  1. XENICAL [Suspect]
     Indication: OVERWEIGHT
     Route: 048
     Dates: start: 20000101, end: 20010101

REACTIONS (2)
  - BLADDER OBSTRUCTION [None]
  - WEIGHT INCREASED [None]
